FAERS Safety Report 8492899-7 (Version None)
Quarter: 2012Q3

REPORT INFORMATION
  Report Type: 
  Country: None (occurrence: None)
  Receive Date: 20120706
  Receipt Date: 20120629
  Transmission Date: 20120928
  Serious: Yes (Other)
  Sender: FDA-Public Use
  Company Number: US-GLAXOSMITHKLINE-A0862940A

PATIENT
  Age: 67 Year
  Sex: Male

DRUGS (10)
  1. ANAFRANIL [Concomitant]
  2. XANAX [Concomitant]
  3. AVANDIA [Suspect]
     Indication: DIABETES MELLITUS
     Dosage: 4MG TWICE PER DAY
     Route: 048
     Dates: start: 20040101, end: 20071214
  4. LOVASTATIN [Concomitant]
  5. METFORMIN HCL [Concomitant]
  6. ATENOLOL [Concomitant]
  7. LYRICA [Concomitant]
  8. COZAAR [Concomitant]
  9. AMBIEN [Concomitant]
  10. BYETTA [Concomitant]

REACTIONS (2)
  - RENAL FAILURE [None]
  - CARDIAC FAILURE CONGESTIVE [None]
